FAERS Safety Report 17257912 (Version 1)
Quarter: 2020Q1

REPORT INFORMATION
  Report Type: Spontaneous
  Country: GB (occurrence: GB)
  Receive Date: 20200110
  Receipt Date: 20200110
  Transmission Date: 20200409
  Serious: Yes (Other)
  Sender: FDA-Public Use
  Company Number: GB-TEVA-2020-GB-1165514

PATIENT
  Age: 54 Year
  Sex: Male
  Weight: 82 kg

DRUGS (6)
  1. OMEPRAZOLE. [Concomitant]
     Active Substance: OMEPRAZOLE
     Dates: start: 20180418
  2. CIPROFLOXACIN. [Concomitant]
     Active Substance: CIPROFLOXACIN
     Dates: start: 20191111, end: 20191121
  3. COCODAMOL [Concomitant]
     Active Substance: ACETAMINOPHEN\CODEINE PHOSPHATE
     Dosage: TAKE 1 OR 2 4 TIMES/DAY
     Dates: start: 20191025, end: 20191122
  4. OFLOXACIN. [Concomitant]
     Active Substance: OFLOXACIN
     Dosage: (HOLD OFF NAPROXEN)
     Dates: start: 20191113, end: 20191127
  5. NITROFURANTOIN. [Suspect]
     Active Substance: NITROFURANTOIN
     Route: 048
     Dates: start: 20191112
  6. NAPROXEN. [Concomitant]
     Active Substance: NAPROXEN
     Dosage: WHEN REQUIRED
     Dates: start: 20180418

REACTIONS (1)
  - Rash [Recovered/Resolved]

NARRATIVE: CASE EVENT DATE: 20191210
